FAERS Safety Report 8156195-X (Version None)
Quarter: 2012Q1

REPORT INFORMATION
  Report Type: 
  Country: None (occurrence: None)
  Receive Date: 20120216
  Receipt Date: 20120131
  Transmission Date: 20120608
  Serious: Yes (Hospitalization)
  Sender: FDA-Public Use
  Company Number: 023573

PATIENT
  Age: 72 Year
  Sex: Male
  Weight: 65 kg

DRUGS (15)
  1. SHAKUYAKU-KANZO-TO (LIQUORICE, PEONY) GRANULES [Concomitant]
  2. KETOPROFEN [Concomitant]
  3. PEGAPTANIB SODIUM (PEGAPTANIB SODIUM) [Suspect]
     Indication: DIABETIC RETINAL OEDEMA
     Dosage: 0.3 MG,
     Dates: start: 20111213
  4. BENIDIPINE (BENIDIPINE) TABLET [Concomitant]
  5. DOMPERIDONE (DOMPERIDONE) TABLET [Concomitant]
  6. SITAGLIPTIN PHOSPHATE (SITAGLIPTIN PHOSPHATE) TABLET [Concomitant]
  7. MAGNESIUM OXIDE (MAGNESIUM OXIDE) GRANULES [Concomitant]
  8. GLIMEPIRIDE (GLIMEPIRIDE) TABLET [Concomitant]
  9. BUFORMIN HYDROCHLORIDE (BUFORMIN HYDROCHLORIDE) TABLET [Concomitant]
  10. OMEPRAZOLE [Concomitant]
  11. EPERISONE (EPERISONE) TABLET [Concomitant]
  12. VALSARTAN [Concomitant]
  13. ACONITE (ACONITE) [Concomitant]
  14. PEGAPTANIB SODIUM; PLACEBO (CODE NOT BROKEN) [Suspect]
     Indication: DIABETIC RETINAL OEDEMA
     Dosage: 0.3 MG,
     Dates: start: 20110517, end: 20110920
  15. LATANOPROST (LATANOPROST) EYE DROPS [Concomitant]

REACTIONS (3)
  - ANGINA PECTORIS [None]
  - PULMONARY OEDEMA [None]
  - CARDIAC FAILURE ACUTE [None]
